FAERS Safety Report 8788607 (Version 2)
Quarter: 2012Q4

REPORT INFORMATION
  Report Type: 
  Country: US (occurrence: US)
  Receive Date: 20120914
  Receipt Date: 20121011
  Transmission Date: 20130627
  Serious: No
  Sender: FDA-Public Use
  Company Number: US-VERTEX PHARMACEUTICAL INC.-AE-2012-011773

PATIENT
  Age: 58 None
  Sex: Male
  Weight: 83 kg

DRUGS (8)
  1. VX-950 [Suspect]
     Indication: HEPATITIS C
     Dosage: 750 mg, tid
     Dates: start: 20120706, end: 20120817
  2. RIBAPAK [Concomitant]
     Indication: HEPATITIS C
     Dosage: 600 mg, bid
     Route: 048
     Dates: start: 20120706, end: 20120817
  3. PEGASYS [Concomitant]
     Indication: HEPATITIS C
     Dosage: 180 ?g, UNK
     Route: 058
     Dates: start: 20120706, end: 20120817
  4. ADDERALL [Concomitant]
     Route: 048
  5. TRAMADOL HCL [Concomitant]
     Route: 048
  6. OMEPRAZOLE [Concomitant]
     Route: 048
  7. BENADRYL                           /00000402/ [Concomitant]
     Dosage: 25 mg, UNK
  8. HYDROXYZ  HCL [Concomitant]
     Dosage: 25 mg, UNK

REACTIONS (8)
  - Drug administration error [Unknown]
  - Dyspnoea exertional [Unknown]
  - Dizziness [Not Recovered/Not Resolved]
  - Weight decreased [Unknown]
  - Vision blurred [Not Recovered/Not Resolved]
  - Headache [Unknown]
  - Rash [Unknown]
  - Urticaria [Unknown]
